FAERS Safety Report 7708571-4 (Version None)
Quarter: 2011Q3

REPORT INFORMATION
  Report Type: 
  Country: None (occurrence: None)
  Receive Date: 20110819
  Receipt Date: 20110816
  Transmission Date: 20111222
  Serious: Yes (Hospitalization, Other)
  Sender: FDA-Public Use
  Company Number: 20096954

PATIENT
  Sex: Female

DRUGS (1)
  1. LIORESAL [Suspect]
     Indication: MUSCLE SPASTICITY
     Dosage: DAILY, INTRATHECAL
     Route: 037

REACTIONS (10)
  - AGITATION [None]
  - DRUG WITHDRAWAL SYNDROME [None]
  - DEVICE OCCLUSION [None]
  - PRURITUS [None]
  - ADHESION [None]
  - MEDICAL DEVICE COMPLICATION [None]
  - DEVICE CONNECTION ISSUE [None]
  - MUSCLE SPASTICITY [None]
  - HYPERTONIA [None]
  - CLONUS [None]
